FAERS Safety Report 21321846 (Version 1)
Quarter: 2022Q3

REPORT INFORMATION
  Report Type: Spontaneous
  Country: BR (occurrence: BR)
  Receive Date: 20220912
  Receipt Date: 20220912
  Transmission Date: 20221027
  Serious: Yes (Other)
  Sender: FDA-Public Use
  Company Number: BR-UCBSA-2022053106

PATIENT
  Sex: Male

DRUGS (8)
  1. KEPPRA [Suspect]
     Active Substance: LEVETIRACETAM
     Indication: Seizure
     Dosage: 40 MILLIGRAM/KILOGRAM/DAY
  2. PHENOBARBITAL [Suspect]
     Active Substance: PHENOBARBITAL
     Indication: Seizure
     Dosage: 5 MILLIGRAM/KILOGRAM/DAY
  3. CLOBAZAM [Suspect]
     Active Substance: CLOBAZAM
     Indication: Seizure
     Dosage: 1 MILLIGRAM/KILOGRAM/DAY
  4. VALPROATE [Suspect]
     Active Substance: VALPROIC ACID
     Indication: Seizure
     Dosage: 50 MILLIGRAM/KILOGRAM/DAY
  5. PYRIDOXINE [Concomitant]
     Active Substance: PYRIDOXINE
     Indication: Product used for unknown indication
     Dosage: 100/DAY
  6. PYRIDOXAL PHOSPHATE [Concomitant]
     Active Substance: PYRIDOXAL PHOSPHATE
     Indication: Product used for unknown indication
     Dosage: 40 MILLIGRAM/KILOGRAM/DAY FOR ONE WEEK
  7. VIGABATRIN [Concomitant]
     Active Substance: VIGABATRIN
     Indication: Product used for unknown indication
     Dosage: 180 MILLIGRAM/KILOGRAM/DAY
  8. VIGABATRIN [Concomitant]
     Active Substance: VIGABATRIN
     Dosage: 150 MILLIGRAM/KILOGRAM/DAY

REACTIONS (4)
  - Lennox-Gastaut syndrome [Unknown]
  - Depressed level of consciousness [Unknown]
  - Sleep disorder [Unknown]
  - Multiple-drug resistance [Unknown]
